FAERS Safety Report 20948454 (Version 1)
Quarter: 2022Q2

REPORT INFORMATION
  Report Type: Other
  Country: AU (occurrence: AU)
  Receive Date: 20220612
  Receipt Date: 20220612
  Transmission Date: 20220721
  Serious: Yes (Hospitalization, Disabling, Other)
  Sender: FDA-Public Use
  Company Number: AU-Square-000069

PATIENT
  Age: 88 Year
  Sex: Female

DRUGS (2)
  1. ARIPIPRAZOLE [Suspect]
     Active Substance: ARIPIPRAZOLE
     Indication: Sedation
     Dosage: DOSE WAS GRADUALLY INCREASED TO 7.5 MG DAILY
  2. ARIPIPRAZOLE [Suspect]
     Active Substance: ARIPIPRAZOLE
     Indication: Apathy
     Dosage: 7.5 MG DAILY

REACTIONS (2)
  - Dystonia [Not Recovered/Not Resolved]
  - Condition aggravated [Not Recovered/Not Resolved]
